FAERS Safety Report 18085606 (Version 3)
Quarter: 2021Q1

REPORT INFORMATION
  Report Type: Spontaneous
  Country: US (occurrence: US)
  Receive Date: 20200729
  Receipt Date: 20210111
  Transmission Date: 20210419
  Serious: No
  Sender: FDA-Public Use
  Company Number: US-MYLANLABS-2020M1067129

PATIENT
  Age: 16 Year
  Sex: Female

DRUGS (1)
  1. XULANE [Suspect]
     Active Substance: ETHINYL ESTRADIOL\NORELGESTROMIN
     Indication: PRODUCT USED FOR UNKNOWN INDICATION
     Dosage: 35/150 MICROGRAM
     Route: 062

REACTIONS (6)
  - Application site haemorrhage [Unknown]
  - Application site irritation [Unknown]
  - Application site scar [Unknown]
  - Application site mass [Unknown]
  - Product adhesion issue [Unknown]
  - Application site pain [Unknown]

NARRATIVE: CASE EVENT DATE: 20200720
